FAERS Safety Report 9199876 (Version 1)
Quarter: 2013Q1

REPORT INFORMATION
  Report Type: Spontaneous
  Country: US (occurrence: GB)
  Receive Date: 20130329
  Receipt Date: 20130329
  Transmission Date: 20140127
  Serious: Yes (Hospitalization)
  Sender: FDA-Public Use
  Company Number: GB-PFIZER INC-GB-WYE-H03338508

PATIENT
  Age: 66 Year
  Sex: Female

DRUGS (6)
  1. IBUPROFEN [Suspect]
     Indication: NECK PAIN
     Dosage: UNKNOWN
     Route: 048
  2. IBUPROFEN [Suspect]
     Indication: SPINAL OSTEOARTHRITIS
  3. AMOXICILLIN [Concomitant]
     Indication: OTITIS EXTERNA
     Route: 048
  4. BECOTIDE [Concomitant]
     Indication: ASTHMA
     Route: 055
  5. SALBUTAMOL [Concomitant]
     Indication: ASTHMA
     Route: 055
  6. GENTAMICIN [Concomitant]
     Indication: OTITIS EXTERNA
     Dosage: UNK

REACTIONS (6)
  - Upper gastrointestinal haemorrhage [Unknown]
  - Gastritis erosive [Unknown]
  - Erosive duodenitis [Unknown]
  - Osteomyelitis [Recovered/Resolved]
  - Intervertebral discitis [Recovered/Resolved]
  - Drug effect decreased [Recovered/Resolved]
